FAERS Safety Report 10463069 (Version 1)
Quarter: 2014Q3

REPORT INFORMATION
  Report Type: Spontaneous
  Country: JP (occurrence: JP)
  Receive Date: 20140919
  Receipt Date: 20140919
  Transmission Date: 20150326
  Serious: Yes (Other)
  Sender: FDA-Public Use
  Company Number: JP-PFIZER INC-2014257290

PATIENT
  Age: 67 Year
  Sex: Male
  Weight: 57 kg

DRUGS (83)
  1. CAMPTO [Suspect]
     Active Substance: IRINOTECAN
     Dosage: 150 MG/M2, 1X/DAY
     Route: 041
  2. CALCIUM LEVOFOLINATE [Suspect]
     Active Substance: LEVOLEUCOVORIN CALCIUM
     Dosage: 200 MG/M2, 1X/DAY
     Route: 041
  3. CALCIUM LEVOFOLINATE [Suspect]
     Active Substance: LEVOLEUCOVORIN CALCIUM
     Dosage: 200 MG/M2, 1X/DAY
     Route: 041
  4. CALCIUM LEVOFOLINATE [Suspect]
     Active Substance: LEVOLEUCOVORIN CALCIUM
     Dosage: 200 MG/M2, 1X/DAY
     Route: 041
     Dates: start: 20140812, end: 20140812
  5. 5-FU [Suspect]
     Active Substance: FLUOROURACIL
     Dosage: 320 MG/M2, 1X/DAY
     Route: 040
     Dates: start: 20140204, end: 20140204
  6. 5-FU [Suspect]
     Active Substance: FLUOROURACIL
     Dosage: 1500 MG/M2, ALTERNATE DAY
     Route: 041
  7. 5-FU [Suspect]
     Active Substance: FLUOROURACIL
     Dosage: 1500 MG/M2, ALTERNATE DAY
     Route: 041
  8. 5-FU [Suspect]
     Active Substance: FLUOROURACIL
     Dosage: 240 MG/M2, 1X/DAY
     Route: 040
  9. AVE0005 [Suspect]
     Active Substance: AFLIBERCEPT
     Dosage: 4 MG/KG, 1X/DAY
     Route: 041
     Dates: start: 20140107, end: 20140107
  10. AVE0005 [Suspect]
     Active Substance: AFLIBERCEPT
     Dosage: 4 MG/KG, 1X/DAY
     Route: 041
     Dates: start: 20140204, end: 20140204
  11. POSTERISAN [Concomitant]
     Active Substance: LIDOCAINE
     Dosage: UNK
     Dates: start: 2011
  12. MICARDIS [Concomitant]
     Active Substance: TELMISARTAN
     Dosage: UNK
     Dates: start: 20131228
  13. CAMPTO [Suspect]
     Active Substance: IRINOTECAN
     Dosage: 150 MG/M2, 1X/DAY
     Route: 041
     Dates: start: 20140204, end: 20140204
  14. CALCIUM LEVOFOLINATE [Suspect]
     Active Substance: LEVOLEUCOVORIN CALCIUM
     Dosage: 200 MG/M2, 1X/DAY
     Route: 041
     Dates: start: 20140107, end: 20140107
  15. 5-FU [Suspect]
     Active Substance: FLUOROURACIL
     Dosage: 2000 MG/M2, ALTERNATE DAY
     Route: 041
     Dates: start: 20140204, end: 20140204
  16. 5-FU [Suspect]
     Active Substance: FLUOROURACIL
     Dosage: 1500 MG/M2, ALTERNATE DAY
     Route: 041
  17. 5-FU [Suspect]
     Active Substance: FLUOROURACIL
     Dosage: 1500 MG/M2, ALTERNATE DAY
     Route: 041
  18. AVE0005 [Suspect]
     Active Substance: AFLIBERCEPT
     Dosage: 4 MG/KG, 1X/DAY
     Route: 041
  19. AVE0005 [Suspect]
     Active Substance: AFLIBERCEPT
     Dosage: 4 MG/KG, 1X/DAY
     Route: 041
  20. PYDOXAL [Concomitant]
     Active Substance: PYRIDOXAL
     Dosage: UNK
     Dates: start: 2012
  21. NORVASC [Concomitant]
     Active Substance: AMLODIPINE BESYLATE
     Dosage: UNK
     Dates: start: 20140325
  22. CAMPTO [Suspect]
     Active Substance: IRINOTECAN
     Dosage: 120 MG/M2, 1X/DAY
     Route: 041
  23. CAMPTO [Suspect]
     Active Substance: IRINOTECAN
     Dosage: 120 MG/M2, 1X/DAY
     Route: 041
  24. CALCIUM LEVOFOLINATE [Suspect]
     Active Substance: LEVOLEUCOVORIN CALCIUM
     Dosage: 200 MG/M2, 1X/DAY
     Route: 041
  25. CALCIUM LEVOFOLINATE [Suspect]
     Active Substance: LEVOLEUCOVORIN CALCIUM
     Dosage: 200 MG/M2, 1X/DAY
     Route: 041
  26. CALCIUM LEVOFOLINATE [Suspect]
     Active Substance: LEVOLEUCOVORIN CALCIUM
     Dosage: 200 MG/M2, 1X/DAY
     Route: 041
  27. 5-FU [Suspect]
     Active Substance: FLUOROURACIL
     Dosage: 240 MG/M2, 1X/DAY
     Route: 040
     Dates: start: 20140401, end: 20140401
  28. 5-FU [Suspect]
     Active Substance: FLUOROURACIL
     Dosage: 240 MG/M2, 1X/DAY
     Route: 040
  29. 5-FU [Suspect]
     Active Substance: FLUOROURACIL
     Dosage: 1500 MG/M2, ALTERNATE DAY
     Route: 041
  30. AVE0005 [Suspect]
     Active Substance: AFLIBERCEPT
     Dosage: 4 MG/KG, 1X/DAY
     Route: 041
  31. MUCODYNE [Concomitant]
     Active Substance: CARBOCYSTEINE
     Dosage: UNK
     Dates: start: 2011
  32. MAGMITT [Concomitant]
     Active Substance: MAGNESIUM OXIDE
     Dosage: UNK
     Dates: start: 2011
  33. LOXONIN [Concomitant]
     Active Substance: LOXOPROFEN SODIUM
     Dosage: UNK
     Dates: start: 20140117
  34. CALONAL [Concomitant]
     Active Substance: ACETAMINOPHEN
     Dosage: UNK
     Dates: start: 20140701
  35. CALCIUM LEVOFOLINATE [Suspect]
     Active Substance: LEVOLEUCOVORIN CALCIUM
     Dosage: 200 MG/M2, 1X/DAY
     Route: 041
     Dates: start: 20140204, end: 20140204
  36. CALCIUM LEVOFOLINATE [Suspect]
     Active Substance: LEVOLEUCOVORIN CALCIUM
     Dosage: 200 MG/M2, 1X/DAY
     Route: 041
     Dates: start: 20140401, end: 20140401
  37. CALCIUM LEVOFOLINATE [Suspect]
     Active Substance: LEVOLEUCOVORIN CALCIUM
     Dosage: 200 MG/M2, 1X/DAY
     Route: 041
  38. CALCIUM LEVOFOLINATE [Suspect]
     Active Substance: LEVOLEUCOVORIN CALCIUM
     Dosage: 200 MG/M2, 1X/DAY
     Route: 041
  39. 5-FU [Suspect]
     Active Substance: FLUOROURACIL
     Dosage: 2400 MG/M2, ALTERNATE DAY
     Route: 041
     Dates: start: 20131210, end: 20131210
  40. 5-FU [Suspect]
     Active Substance: FLUOROURACIL
     Dosage: 2400 MG/M2, ALTERNATE DAY
     Route: 041
     Dates: start: 20140107, end: 20140107
  41. 5-FU [Suspect]
     Active Substance: FLUOROURACIL
     Dosage: 2000 MG/M2, ALTERNATE DAY
     Route: 041
  42. 5-FU [Suspect]
     Active Substance: FLUOROURACIL
     Dosage: 1500 MG/M2, ALTERNATE DAY
     Route: 041
  43. AVE0005 [Suspect]
     Active Substance: AFLIBERCEPT
     Dosage: 4 MG/KG, 1X/DAY
     Route: 041
  44. LIVALO [Concomitant]
     Active Substance: PITAVASTATIN CALCIUM
     Dosage: UNK
     Dates: start: 1991
  45. CAMPTO [Suspect]
     Active Substance: IRINOTECAN
     Dosage: 120 MG/M2, 1X/DAY
     Route: 041
  46. CAMPTO [Suspect]
     Active Substance: IRINOTECAN
     Dosage: 120 MG/M2, 1X/DAY
     Route: 041
  47. 5-FU [Suspect]
     Active Substance: FLUOROURACIL
     Dosage: 320 MG/M2, 1X/DAY
     Route: 040
  48. 5-FU [Suspect]
     Active Substance: FLUOROURACIL
     Dosage: 320 MG/M2, 1X/DAY
     Route: 040
  49. 5-FU [Suspect]
     Active Substance: FLUOROURACIL
     Dosage: 240 MG/M2, 1X/DAY
     Route: 040
  50. 5-FU [Suspect]
     Active Substance: FLUOROURACIL
     Dosage: 1500 MG/M2, ALTERNATE DAY
     Route: 041
  51. AVE0005 [Suspect]
     Active Substance: AFLIBERCEPT
     Dosage: 4 MG/KG, 1X/DAY
     Route: 041
  52. AVE0005 [Suspect]
     Active Substance: AFLIBERCEPT
     Dosage: 4 MG/KG, 1X/DAY
     Route: 041
  53. AVE0005 [Suspect]
     Active Substance: AFLIBERCEPT
     Dosage: 4 MG/KG, 1X/DAY
     Route: 041
     Dates: start: 20140812, end: 20140812
  54. CAMPTO [Suspect]
     Active Substance: IRINOTECAN
     Dosage: 150 MG/M2, 1X/DAY
     Route: 041
  55. CAMPTO [Suspect]
     Active Substance: IRINOTECAN
     Dosage: 120 MG/M2, 1X/DAY
     Route: 041
  56. CALCIUM LEVOFOLINATE [Suspect]
     Active Substance: LEVOLEUCOVORIN CALCIUM
     Dosage: 200 MG/M2, 1X/DAY
     Route: 041
  57. CALCIUM LEVOFOLINATE [Suspect]
     Active Substance: LEVOLEUCOVORIN CALCIUM
     Dosage: 200 MG/M2, 1X/DAY
     Route: 041
  58. 5-FU [Suspect]
     Active Substance: FLUOROURACIL
     Indication: COLON CANCER
     Dosage: 400 MG/M2, 1X/DAY
     Route: 040
     Dates: start: 20131210, end: 20131210
  59. 5-FU [Suspect]
     Active Substance: FLUOROURACIL
     Dosage: 240 MG/M2, 1X/DAY
     Route: 040
  60. BROTIZOLAM [Concomitant]
     Active Substance: BROTIZOLAM
     Dosage: UNK
     Dates: start: 2011
  61. CAMPTO [Suspect]
     Active Substance: IRINOTECAN
     Dosage: 150 MG/M2, 1X/DAY
     Route: 041
     Dates: start: 20140107, end: 20140107
  62. CAMPTO [Suspect]
     Active Substance: IRINOTECAN
     Dosage: 120 MG/M2, 1X/DAY
     Route: 041
     Dates: start: 20140401, end: 20140401
  63. CAMPTO [Suspect]
     Active Substance: IRINOTECAN
     Dosage: 120 MG/M2, 1X/DAY
     Route: 041
  64. 5-FU [Suspect]
     Active Substance: FLUOROURACIL
     Dosage: 2000 MG/M2, ALTERNATE DAY
     Route: 041
  65. 5-FU [Suspect]
     Active Substance: FLUOROURACIL
     Dosage: 1500 MG/M2, ALTERNATE DAY
     Route: 041
     Dates: start: 20140401, end: 20140401
  66. 5-FU [Suspect]
     Active Substance: FLUOROURACIL
     Dosage: 240 MG/M2, 1X/DAY
     Route: 040
  67. AVE0005 [Suspect]
     Active Substance: AFLIBERCEPT
     Indication: COLON CANCER
     Dosage: 4 MG/KG, 1X/DAY
     Route: 041
     Dates: start: 20131210, end: 20131210
  68. AVE0005 [Suspect]
     Active Substance: AFLIBERCEPT
     Dosage: 4 MG/KG, 1X/DAY
     Route: 041
  69. AVE0005 [Suspect]
     Active Substance: AFLIBERCEPT
     Dosage: 4 MG/KG, 1X/DAY
     Route: 041
  70. TRANEXAMIC ACID C [Concomitant]
     Dosage: UNK
     Dates: start: 20131226
  71. CAMPTO [Suspect]
     Active Substance: IRINOTECAN
     Indication: COLON CANCER
     Dosage: 180 MG/M2, 1X/DAY
     Route: 041
     Dates: start: 20131210, end: 20131210
  72. CAMPTO [Suspect]
     Active Substance: IRINOTECAN
     Dosage: 120 MG/M2, 1X/DAY
     Route: 041
  73. CAMPTO [Suspect]
     Active Substance: IRINOTECAN
     Dosage: 120 MG/M2, 1X/DAY
     Route: 041
     Dates: start: 20140812, end: 20140812
  74. CALCIUM LEVOFOLINATE [Suspect]
     Active Substance: LEVOLEUCOVORIN CALCIUM
     Indication: COLON CANCER
     Dosage: 200 MG/M2, 1X/DAY
     Route: 041
     Dates: start: 20131210, end: 20131210
  75. CALCIUM LEVOFOLINATE [Suspect]
     Active Substance: LEVOLEUCOVORIN CALCIUM
     Dosage: 400 MG/M2, 1X/DAY
     Route: 040
     Dates: start: 20140812, end: 20140812
  76. 5-FU [Suspect]
     Active Substance: FLUOROURACIL
     Dosage: 400 MG/M2, 1X/DAY
     Route: 040
     Dates: start: 20140107, end: 20140107
  77. 5-FU [Suspect]
     Active Substance: FLUOROURACIL
     Dosage: 1500 MG/M2, ALTERNATE DAY
     Route: 041
  78. 5-FU [Suspect]
     Active Substance: FLUOROURACIL
     Dosage: 240 MG/M2, 1X/DAY
     Route: 040
  79. 5-FU [Suspect]
     Active Substance: FLUOROURACIL
     Dosage: 240 MG/M2, 1X/DAY
     Route: 040
  80. 5-FU [Suspect]
     Active Substance: FLUOROURACIL
     Dosage: 240 MG/M2, 1X/DAY
     Route: 040
  81. AVE0005 [Suspect]
     Active Substance: AFLIBERCEPT
     Dosage: 4 MG/KG, 1X/DAY
     Route: 041
  82. AVE0005 [Suspect]
     Active Substance: AFLIBERCEPT
     Dosage: 4 MG/KG, 1X/DAY
     Route: 041
     Dates: start: 20140401, end: 20140401
  83. NEXIUM [Concomitant]
     Active Substance: ESOMEPRAZOLE MAGNESIUM
     Dosage: UNK
     Dates: start: 20131112

REACTIONS (3)
  - Osteonecrosis of jaw [Not Recovered/Not Resolved]
  - Neutropenia [Unknown]
  - Stomatitis [Unknown]

NARRATIVE: CASE EVENT DATE: 20140107
